FAERS Safety Report 10008622 (Version 1)
Quarter: 2014Q1

REPORT INFORMATION
  Report Type: Spontaneous
  Country: US (occurrence: US)
  Receive Date: 20140312
  Receipt Date: 20140312
  Transmission Date: 20141002
  Serious: No
  Sender: FDA-Public Use
  Company Number: US-INCYTE CORPORATION-2012IN000353

PATIENT
  Sex: Female

DRUGS (12)
  1. JAKAFI [Suspect]
     Indication: MYELOFIBROSIS
     Dosage: 20 MG, BID
     Route: 048
     Dates: start: 20120211
  2. LANTUS [Concomitant]
     Indication: TYPE 2 DIABETES MELLITUS
     Dosage: 32 IU, QD
  3. LANTUS [Concomitant]
     Dosage: DECREASED BY 2 UNITS
  4. GLIPIZIDE [Concomitant]
     Indication: TYPE 2 DIABETES MELLITUS
     Dosage: 10 MG, QD (HELD FOR BLOOD GLUCOSE {70)
  5. ADVAIR [Concomitant]
     Dosage: 250 1 PUFF, BID
  6. OMEPRAZOLE [Concomitant]
     Dosage: 20 MG, BID
  7. GABAPENTIN [Concomitant]
     Dosage: 900 MG, BID
  8. DANAZOL [Concomitant]
     Dosage: 200 MG, QD
  9. TORSEMIDE [Concomitant]
     Dosage: 20 MG, BID
  10. METOPROLOL [Concomitant]
     Dosage: 25 MG, QD
  11. DEFEROXAMINE [Concomitant]
     Dosage: 8 MG, OVER 8 HOURS SELF ADMINISTERED QD
  12. HYDROCODONE [Concomitant]
     Dosage: UNK, PRN

REACTIONS (1)
  - Blood glucose decreased [Unknown]
